FAERS Safety Report 17821254 (Version 1)
Quarter: 2020Q2

REPORT INFORMATION
  Report Type: Report from Study
  Country: MX (occurrence: MX)
  Receive Date: 20200525
  Receipt Date: 20200525
  Transmission Date: 20200714
  Serious: Yes (Death, Hospitalization)
  Sender: FDA-Public Use
  Company Number: MX-PFIZER INC-2020203550

PATIENT
  Age: 38 Year
  Sex: Female
  Weight: 52 kg

DRUGS (6)
  1. SILDENAFIL CITRATE. [Suspect]
     Active Substance: SILDENAFIL CITRATE
     Dosage: UNK
     Dates: start: 20170428, end: 20200302
  2. TREPROSTINIL DIETHANOLAMINE [Suspect]
     Active Substance: TREPROSTINIL
     Indication: PULMONARY ARTERIAL HYPERTENSION
     Dosage: 5 MG, 3X/DAY
     Route: 048
     Dates: start: 20170621, end: 20200302
  3. SPIRONOLACTONE. [Suspect]
     Active Substance: SPIRONOLACTONE
     Indication: PULMONARY ARTERIAL HYPERTENSION
     Dosage: UNK
     Dates: start: 20190516, end: 20200302
  4. FUROSEMIDE. [Suspect]
     Active Substance: FUROSEMIDE
     Indication: PULMONARY ARTERIAL HYPERTENSION
     Dosage: UNK
     Dates: start: 20190516, end: 20200302
  5. DIGOXIN. [Suspect]
     Active Substance: DIGOXIN
     Dosage: UNK
     Dates: start: 20191204, end: 20200302
  6. ESOMEPRAZOLE. [Concomitant]
     Active Substance: ESOMEPRAZOLE MAGNESIUM
     Dosage: UNK
     Dates: start: 20200116

REACTIONS (1)
  - Acute abdomen [Fatal]

NARRATIVE: CASE EVENT DATE: 20200228
